FAERS Safety Report 12982548 (Version 1)
Quarter: 2016Q4

REPORT INFORMATION
  Report Type: Spontaneous
  Country: DE (occurrence: DE)
  Receive Date: 20161129
  Receipt Date: 20161129
  Transmission Date: 20170207
  Serious: Yes (Hospitalization, Disabling)
  Sender: FDA-Public Use
  Company Number: DE-PFIZER INC-2016544022

PATIENT
  Age: 74 Year
  Sex: Male

DRUGS (13)
  1. APROVEL [Concomitant]
     Active Substance: IRBESARTAN
     Dosage: 300 MG, 1X/DAY
     Route: 048
     Dates: start: 2015
  2. TAVOR (LORAZEPAM) [Suspect]
     Active Substance: LORAZEPAM
     Dosage: 2 MG, 1X/DAY
     Route: 048
     Dates: start: 20160623, end: 20160624
  3. ESCITALOPRAM LUNDBECK [Suspect]
     Active Substance: ESCITALOPRAM OXALATE
     Dosage: 10 MG, 1X/DAY
     Route: 048
     Dates: start: 20160301, end: 20160613
  4. ESCITALOPRAM LUNDBECK [Suspect]
     Active Substance: ESCITALOPRAM OXALATE
     Dosage: 20 MG, 1X/DAY
     Route: 048
     Dates: start: 20160314, end: 20160708
  5. OLANZAPIN [Suspect]
     Active Substance: OLANZAPINE
     Dosage: 5 MG, 1X/DAY
     Route: 048
     Dates: start: 20160615
  6. KALIUM DURULE [Concomitant]
     Dosage: 3 DF, 1X/DAY
     Route: 048
     Dates: start: 20160610, end: 20160619
  7. TAVOR (LORAZEPAM) [Suspect]
     Active Substance: LORAZEPAM
     Dosage: 3 MG, 1X/DAY
     Route: 048
     Dates: start: 20160613, end: 20160622
  8. URIVESC [Concomitant]
     Active Substance: TROSPIUM CHLORIDE
     Dosage: 60 MG, 1X/DAY
     Route: 048
     Dates: start: 2015
  9. MIRTAZAPIN [Suspect]
     Active Substance: MIRTAZAPINE
     Dosage: 30 MG, 1X/DAY
     Route: 048
     Dates: start: 20160409
  10. L-THYROXIN [Concomitant]
     Active Substance: LEVOTHYROXINE SODIUM
     Dosage: 100 UG, 1X/DAY
     Route: 048
     Dates: start: 2012
  11. TAVOR (LORAZEPAM) [Suspect]
     Active Substance: LORAZEPAM
     Dosage: 1.5 MG, 1X/DAY
     Route: 048
     Dates: start: 20160625
  12. OLANZAPIN [Suspect]
     Active Substance: OLANZAPINE
     Dosage: 2.5 MG, 1X/DAY
     Route: 048
     Dates: start: 20160613, end: 20160614
  13. FELODIPIN [Concomitant]
     Active Substance: FELODIPINE
     Dosage: 10 MG, 1X/DAY
     Route: 048
     Dates: start: 2012

REACTIONS (3)
  - Dizziness [Recovered/Resolved]
  - Fall [Recovered/Resolved]
  - Cervical vertebral fracture [Recovered/Resolved]

NARRATIVE: CASE EVENT DATE: 20160618
